FAERS Safety Report 15398479 (Version 6)
Quarter: 2020Q1

REPORT INFORMATION
  Report Type: Report from Study
  Country: DE (occurrence: DE)
  Receive Date: 20180918
  Receipt Date: 20200122
  Transmission Date: 20200409
  Serious: Yes (Death, Hospitalization)
  Sender: FDA-Public Use
  Company Number: DE-MYLANLABS-2018M1068242

PATIENT
  Age: 76 Year
  Sex: Male
  Weight: 95 kg

DRUGS (12)
  1. PANTOPRAZOLE RATIOPHARM [Concomitant]
     Indication: PROPHYLAXIS
     Dosage: 20 MILLIGRAM, QD
     Route: 048
  2. ENALAPRIL-RATIOPHARM [Suspect]
     Active Substance: ENALAPRIL
     Dosage: 10 MILLIGRAM, QD
     Route: 048
  3. METOPROLOL SUCCINAT BETA [Concomitant]
     Active Substance: METOPROLOL SUCCINATE
     Indication: HYPERTENSION
     Dosage: 47.5 MILLIGRAM, BID(95 MG,QD)
     Route: 048
  4. LEVOFLOXACIN. [Suspect]
     Active Substance: LEVOFLOXACIN
     Indication: PRODUCT USED FOR UNKNOWN INDICATION
     Dosage: UNK
     Route: 065
  5. DIGITOXIN [Suspect]
     Active Substance: DIGITOXIN
     Indication: PRODUCT USED FOR UNKNOWN INDICATION
     Dosage: UNK
     Route: 065
  6. ENALAPRIL-RATIOPHARM [Suspect]
     Active Substance: ENALAPRIL
     Indication: HYPERTENSION
     Dosage: 5 MILLIGRAM, QD
     Route: 048
  7. VOTRIENT [Suspect]
     Active Substance: PAZOPANIB HYDROCHLORIDE
     Dosage: 800 MILLIGRAM, QD
     Route: 048
     Dates: start: 20161130, end: 20170104
  8. ELIQUIS [Concomitant]
     Active Substance: APIXABAN
     Indication: ARRHYTHMIA
     Dosage: 2.5 MILLIGRAM, BID(5 MG,QD)
     Route: 048
     Dates: start: 20160716
  9. TORASEMID-RATIOPHARM [Suspect]
     Active Substance: TORSEMIDE
     Indication: HYPERTENSION
     Dosage: 10 MILLIGRAM, QD
     Route: 048
  10. MERONEM [Suspect]
     Active Substance: MEROPENEM
     Indication: PRODUCT USED FOR UNKNOWN INDICATION
     Dosage: UNK
     Route: 065
  11. VOTRIENT [Suspect]
     Active Substance: PAZOPANIB HYDROCHLORIDE
     Indication: METASTATIC RENAL CELL CARCINOMA
     Dosage: 400 MILLIGRAM, QD
     Route: 048
     Dates: start: 20161105, end: 20161118
  12. VOTRIENT [Suspect]
     Active Substance: PAZOPANIB HYDROCHLORIDE
     Dosage: 1200 MILLIGRAM, QD
     Route: 048
     Dates: start: 20161119, end: 20161129

REACTIONS (3)
  - Acute kidney injury [Fatal]
  - Overdose [Recovered/Resolved]
  - Lower limb fracture [Recovering/Resolving]

NARRATIVE: CASE EVENT DATE: 20161119
